FAERS Safety Report 7339677-X (Version None)
Quarter: 2011Q1

REPORT INFORMATION
  Report Type: 
  Country: None (occurrence: None)
  Receive Date: 20110309
  Receipt Date: 20110226
  Transmission Date: 20110831
  Serious: Yes (Hospitalization, Other)
  Sender: FDA-Public Use
  Company Number: FR-AMGEN-FRASP2011012394

PATIENT
  Age: 29 Year
  Sex: Female

DRUGS (3)
  1. METHOTREXATE [Concomitant]
     Dosage: 6 TABLETS A WEEK
  2. METHOTREXATE [Concomitant]
     Dosage: 8 TABLETS A WEEK
  3. ENBREL [Suspect]
     Indication: RHEUMATOID ARTHRITIS
     Dosage: UNK
     Dates: start: 20090827, end: 20101201

REACTIONS (4)
  - ASCITES [None]
  - TUBERCULOSIS [None]
  - ABDOMINAL PAIN [None]
  - WEIGHT DECREASED [None]
